FAERS Safety Report 10277355 (Version 2)
Quarter: 2014Q3

REPORT INFORMATION
  Report Type: Spontaneous
  Country: US (occurrence: US)
  Receive Date: 20140703
  Receipt Date: 20140703
  Transmission Date: 20150326
  Serious: No
  Sender: FDA-Public Use
  Company Number: US-MALLINCKRODT-T201401611

PATIENT
  Age: 69 Year
  Sex: Female
  Weight: 45.35 kg

DRUGS (5)
  1. METOPROLOL [Suspect]
     Active Substance: METOPROLOL
     Indication: TACHYCARDIA
     Dosage: 25 MG, 1/2 TABLET, BID
     Route: 048
     Dates: start: 20140211, end: 20140228
  2. OXYCODONE [Suspect]
     Active Substance: OXYCODONE
     Indication: BACK PAIN
     Dosage: 5 MG, 1-2 TABLETS Q4H
     Route: 048
     Dates: start: 20140131, end: 20140318
  3. ATIVAN [Concomitant]
     Active Substance: LORAZEPAM
     Indication: GASTROOESOPHAGEAL REFLUX DISEASE
     Dosage: 0.5 MG, TID
     Route: 048
  4. SERTRALINE [Suspect]
     Active Substance: SERTRALINE HYDROCHLORIDE
     Indication: DEPRESSION
     Dosage: 25 MG TO 50 MG, QD
     Route: 048
     Dates: start: 20140211, end: 20140228
  5. TRAZODONE [Concomitant]
     Active Substance: TRAZODONE HYDROCHLORIDE
     Indication: SLEEP DISORDER
     Dosage: 50 MG, QHS PRN, 1/2 TABLET
     Route: 048

REACTIONS (6)
  - Nervousness [Recovering/Resolving]
  - Bladder discomfort [Recovering/Resolving]
  - Pollakiuria [Not Recovered/Not Resolved]
  - Chills [Recovering/Resolving]
  - Feeling jittery [Recovering/Resolving]
  - Micturition urgency [Not Recovered/Not Resolved]

NARRATIVE: CASE EVENT DATE: 20140212
